FAERS Safety Report 6148897-1 (Version None)
Quarter: 2009Q2

REPORT INFORMATION
  Report Type: 
  Country: None (occurrence: None)
  Receive Date: 20090408
  Receipt Date: 20090403
  Transmission Date: 20091009
  Serious: Yes (Hospitalization)
  Sender: FDA-Public Use
  Company Number: DE-ABBOTT-09P-062-0566423-00

PATIENT
  Sex: Female

DRUGS (7)
  1. HUMIRA [Suspect]
     Indication: PSORIATIC ARTHROPATHY
     Route: 058
     Dates: start: 20070601, end: 20090301
  2. L-THYROX [Concomitant]
     Indication: HYPOTHYROIDISM
     Route: 048
  3. OMEP [Concomitant]
     Indication: DRUG USE FOR UNKNOWN INDICATION
  4. TILIDIN [Concomitant]
     Indication: PAIN
     Dates: start: 20090301
  5. VOLTAREN [Concomitant]
     Indication: DRUG USE FOR UNKNOWN INDICATION
  6. TETRAZEP [Concomitant]
     Indication: DRUG USE FOR UNKNOWN INDICATION
  7. CEFIXDURA 400 [Concomitant]
     Indication: PNEUMONIA
     Dates: start: 20090301

REACTIONS (2)
  - PNEUMONIA [None]
  - POLYNEUROPATHY [None]
